FAERS Safety Report 7707563-9 (Version None)
Quarter: 2011Q3

REPORT INFORMATION
  Report Type: 
  Country: None (occurrence: None)
  Receive Date: 20110824
  Receipt Date: 20110815
  Transmission Date: 20111222
  Serious: Yes (Death, Hospitalization)
  Sender: FDA-Public Use
  Company Number: JP-CELGENEUS-087-50794-11043081

PATIENT
  Sex: Female

DRUGS (2)
  1. VIDAZA [Suspect]
     Dosage: 75 MILLIGRAM/SQ. METER
     Route: 065
     Dates: start: 20110406, end: 20110412
  2. VIDAZA [Suspect]
     Dosage: REDUCED DOSE
     Route: 065
     Dates: start: 20110101, end: 20110101

REACTIONS (1)
  - PNEUMONIA [None]
